FAERS Safety Report 13377883 (Version 1)
Quarter: 2017Q1

REPORT INFORMATION
  Report Type: Spontaneous
  Country: US (occurrence: US)
  Receive Date: 20170328
  Receipt Date: 20170328
  Transmission Date: 20170429
  Serious: Yes (Hospitalization)
  Sender: FDA-Public Use
  Company Number: US-B.I. PHARMACEUTICALS,INC./RIDGEFIELD-2017-BI-016742

PATIENT
  Age: 60 Year
  Sex: Male

DRUGS (4)
  1. STIOLTO RESPIMAT [Suspect]
     Active Substance: OLODATEROL HYDROCHLORIDE\TIOTROPIUM BROMIDE MONOHYDRATE
     Indication: CHRONIC OBSTRUCTIVE PULMONARY DISEASE
     Dosage: 2 INHALATION 1 TIME DAILY;  FORM STRENGTH: 2.5 MCG; FORMULATION: INHALATION SPRAY? ADMINISTRATION CO
     Route: 055
     Dates: start: 201611
  2. COREG [Concomitant]
     Active Substance: CARVEDILOL
     Indication: HYPERTENSION
     Dosage: 1 TABLET BID;  FORM STRENGTH: 3.125 MG; FORMULATION: TABLET
     Route: 048
  3. SPIRIVA [Suspect]
     Active Substance: TIOTROPIUM BROMIDE MONOHYDRATE
     Indication: CHRONIC OBSTRUCTIVE PULMONARY DISEASE
     Dosage: 1 CAPSULE 1 TIME DAILY;  FORM STRENGTH: 18 MCG; FORMULATION: CAPSULE? ADMINISTRATION CORRECT? YES ?A
     Route: 055
     Dates: start: 2016, end: 2016
  4. LASIX [Concomitant]
     Active Substance: FUROSEMIDE
     Indication: CARDIAC FAILURE CONGESTIVE
     Dosage: 1 TABLET DAILY EVERY OTHER DAY;  FORM STRENGTH: 40 MG; FORMULATION: TABLET
     Route: 048

REACTIONS (1)
  - Dyspnoea [Not Recovered/Not Resolved]

NARRATIVE: CASE EVENT DATE: 201703
